FAERS Safety Report 16594344 (Version 1)
Quarter: 2019Q3

REPORT INFORMATION
  Report Type: Other
  Country: CO (occurrence: CO)
  Receive Date: 20190718
  Receipt Date: 20190718
  Transmission Date: 20191004
  Serious: Yes (Other)
  Sender: FDA-Public Use
  Company Number: CO-VITRUVIAS THERAPEUTICS-2071013

PATIENT
  Age: 24 Year
  Sex: Female

DRUGS (3)
  1. CYANOCOBALAMIN. [Suspect]
     Active Substance: CYANOCOBALAMIN
     Indication: VITAMIN B12 DEFICIENCY
     Route: 030
  2. CYANOCOBALAMIN. [Suspect]
     Active Substance: CYANOCOBALAMIN
     Route: 030
  3. CYANOCOBALAMIN. [Suspect]
     Active Substance: CYANOCOBALAMIN
     Route: 030

REACTIONS (9)
  - Erythema [Recovered/Resolved]
  - Palpitations [Recovered/Resolved]
  - Discomfort [Unknown]
  - Insomnia [Recovered/Resolved]
  - Akathisia [Recovered/Resolved]
  - Headache [Recovered/Resolved]
  - Dermatitis acneiform [Recovering/Resolving]
  - Anxiety [Recovered/Resolved]
  - Off label use [Unknown]
